FAERS Safety Report 24638242 (Version 1)
Quarter: 2024Q4

REPORT INFORMATION
  Report Type: Spontaneous
  Country: US (occurrence: None)
  Receive Date: 20241119
  Receipt Date: 20241119
  Transmission Date: 20250115
  Serious: Yes (unspecified)
  Sender: Public
  Company Number: None

PATIENT
  Age: 74 Year
  Sex: Male
  Weight: 53 kg

DRUGS (1)
  1. CEFTRIAXONE SODIUM [Suspect]
     Active Substance: CEFTRIAXONE SODIUM
     Indication: Spontaneous bacterial peritonitis
     Dosage: FREQUENCY : DAILY;?
     Route: 042
     Dates: start: 20240705, end: 20240708

REACTIONS (2)
  - Fatigue [None]
  - Melaena [None]

NARRATIVE: CASE EVENT DATE: 20240709
